FAERS Safety Report 5405479-4 (Version None)
Quarter: 2007Q3

REPORT INFORMATION
  Report Type: 
  Country: None (occurrence: None)
  Receive Date: 20070803
  Receipt Date: 20070727
  Transmission Date: 20080115
  Serious: Yes (Hospitalization)
  Sender: FDA-Public Use
  Company Number: GB-AMGEN-UK232017

PATIENT
  Sex: Female

DRUGS (4)
  1. PANITUMUMAB [Suspect]
     Route: 042
     Dates: start: 20070313
  2. FLUOROURACIL [Suspect]
  3. OXALIPLATIN [Suspect]
  4. LEUCOVORIN CALCIUM [Concomitant]

REACTIONS (8)
  - BLOOD CREATININE INCREASED [None]
  - BLOOD UREA INCREASED [None]
  - DEHYDRATION [None]
  - DIARRHOEA [None]
  - LETHARGY [None]
  - MALAISE [None]
  - NAUSEA [None]
  - VOMITING [None]
